FAERS Safety Report 4525876-9 (Version None)
Quarter: 2004Q4

REPORT INFORMATION
  Report Type: 
  Country: None (occurrence: None)
  Receive Date: 20041124
  Receipt Date: 20040317
  Transmission Date: 20050328
  Serious: Yes (Other)
  Sender: FDA-Public Use
  Company Number: 2004005734

PATIENT

DRUGS (1)
  1. TIKOSYN [Suspect]
     Indication: ARRHYTHMIA SUPRAVENTRICULAR

REACTIONS (1)
  - ANGIONEUROTIC OEDEMA [None]
